FAERS Safety Report 7776416-2 (Version None)
Quarter: 2011Q3

REPORT INFORMATION
  Report Type: 
  Country: None (occurrence: None)
  Receive Date: 20110926
  Receipt Date: 20110921
  Transmission Date: 20111222
  Serious: Yes (Life-Threatening, Hospitalization)
  Sender: FDA-Public Use
  Company Number: JP-PFIZER INC-2009190332

PATIENT
  Age: 61 Year
  Sex: Male
  Weight: 67 kg

DRUGS (11)
  1. SUNITINIB MALATE [Suspect]
     Dosage: 37.5 MG, 1X/DAY
     Dates: start: 20100603, end: 20101123
  2. VALSARTAN [Concomitant]
     Dosage: UNK
     Route: 048
     Dates: start: 20081109, end: 20081203
  3. SENNOSIDE A [Concomitant]
     Dosage: UNK
     Route: 048
     Dates: start: 20081116, end: 20081116
  4. NORVASC [Concomitant]
     Dosage: UNK
     Route: 048
     Dates: start: 20081126, end: 20081203
  5. SUNITINIB MALATE [Suspect]
     Indication: RENAL CELL CARCINOMA
     Dosage: 50 MG, 1X/DAY
     Route: 048
     Dates: start: 20081105
  6. SUNITINIB MALATE [Suspect]
     Dosage: 25 MG, 1X/DAY
  7. RINDERON-VG [Concomitant]
     Dosage: UNK
     Route: 062
     Dates: start: 20081117, end: 20081201
  8. NAPROXEN [Concomitant]
     Dosage: UNK
     Route: 048
     Dates: start: 20081126, end: 20081203
  9. RABEPRAZOLE SODIUM [Concomitant]
     Dosage: UNK
     Route: 048
     Dates: start: 20081126, end: 20081203
  10. SUNITINIB MALATE [Suspect]
     Dosage: 37.5 MG, 1X/DAY
  11. SUNITINIB MALATE [Suspect]
     Dosage: 37.5 MG, 1X/DAY

REACTIONS (4)
  - LARGE INTESTINE PERFORATION [None]
  - DISSEMINATED INTRAVASCULAR COAGULATION [None]
  - PLATELET COUNT DECREASED [None]
  - INFECTIOUS PERITONITIS [None]
